FAERS Safety Report 22960195 (Version 2)
Quarter: 2025Q3

REPORT INFORMATION
  Report Type: Report from Study
  Country: US (occurrence: US)
  Receive Date: 20230920
  Receipt Date: 20250701
  Transmission Date: 20251020
  Serious: Yes (Hospitalization, Other)
  Sender: ABBVIE
  Company Number: US-ABBVIE-5404049

PATIENT
  Age: 70 Year
  Sex: Male

DRUGS (2)
  1. IMBRUVICA [Suspect]
     Active Substance: IBRUTINIB
     Indication: Chronic lymphocytic leukaemia recurrent
     Dosage: 3 TABLET OF 140 MG, LAST ADMIN DATE- 2016
     Route: 048
     Dates: start: 20161130
  2. IMBRUVICA [Suspect]
     Active Substance: IBRUTINIB
     Indication: Chronic lymphocytic leukaemia recurrent
     Dosage: TAKING 3 TABLET OF 140 MG
     Route: 048
     Dates: start: 20161202

REACTIONS (14)
  - Post procedural haematuria [Unknown]
  - Colitis [Unknown]
  - Urinary tract infection [Recovered/Resolved]
  - Haematoma [Recovered/Resolved]
  - Hernia [Unknown]
  - Platelet count decreased [Unknown]
  - Illness [Recovered/Resolved]
  - COVID-19 [Recovered/Resolved]
  - Contusion [Recovered/Resolved]
  - Kidney infection [Unknown]
  - Papule [Unknown]
  - Skin discolouration [Unknown]
  - Pain [Unknown]
  - White blood cell count increased [Recovered/Resolved]

NARRATIVE: CASE EVENT DATE: 20200101
